FAERS Safety Report 22535412 (Version 3)
Quarter: 2023Q4

REPORT INFORMATION
  Report Type: Spontaneous
  Country: GB (occurrence: GB)
  Receive Date: 20230608
  Receipt Date: 20231110
  Transmission Date: 20240109
  Serious: Yes (Death, Hospitalization, Other)
  Sender: FDA-Public Use
  Company Number: None

PATIENT
  Age: 44 Year
  Sex: Female

DRUGS (2)
  1. OLANZAPINE [Suspect]
     Active Substance: OLANZAPINE
     Indication: Product used for unknown indication
     Dosage: UNK,  UNK
     Route: 065
  2. CLOZARIL [Suspect]
     Active Substance: CLOZAPINE
     Indication: Schizophrenia
     Dosage: UNK,  UNK ( (OVER 10 YEARS))
     Route: 048
     Dates: start: 20090526

REACTIONS (4)
  - Lymphoma [Unknown]
  - General physical condition abnormal [Unknown]
  - Eosinophilia [Unknown]
  - Death [Fatal]

NARRATIVE: CASE EVENT DATE: 20230412
